FAERS Safety Report 10072366 (Version 4)
Quarter: 2014Q2

REPORT INFORMATION
  Report Type: Report from Study
  Country: US (occurrence: US)
  Receive Date: 20140411
  Receipt Date: 20140603
  Transmission Date: 20141212
  Serious: Yes (Hospitalization)
  Sender: FDA-Public Use
  Company Number: US-JNJFOC-20140405305

PATIENT
  Age: 20 Year
  Sex: Female
  Weight: 63.5 kg

DRUGS (13)
  1. REMICADE [Suspect]
     Indication: INFLAMMATORY BOWEL DISEASE
     Route: 042
     Dates: start: 20100705, end: 20110129
  2. CIMZIA [Concomitant]
     Route: 065
     Dates: start: 20140329
  3. CIMZIA [Concomitant]
     Route: 065
     Dates: start: 20120703
  4. METHOTREXATE [Concomitant]
     Route: 065
  5. FLONASE [Concomitant]
     Route: 065
  6. FOLIC ACID [Concomitant]
     Route: 065
  7. HYDROXYZINE [Concomitant]
     Route: 065
  8. MOMETASONE [Concomitant]
     Route: 065
  9. ONDANSETRON [Concomitant]
     Route: 065
  10. QUASENSE [Concomitant]
     Route: 065
  11. SINGULAIR [Concomitant]
     Route: 065
  12. TRIAMCINOLONE ACETONIDE [Concomitant]
     Route: 065
  13. XOPENEX [Concomitant]
     Route: 065

REACTIONS (1)
  - Intestinal obstruction [Recovered/Resolved]
